FAERS Safety Report 17011587 (Version 2)
Quarter: 2020Q4

REPORT INFORMATION
  Report Type: Report from Study
  Country: BR (occurrence: BR)
  Receive Date: 20191108
  Receipt Date: 20201104
  Transmission Date: 20210113
  Serious: Yes (Other)
  Sender: FDA-Public Use
  Company Number: BR-JNJFOC-20191101791

PATIENT
  Age: 14 Year
  Sex: Female
  Weight: 37 kg

DRUGS (10)
  1. ALLEGRA [Concomitant]
     Active Substance: FEXOFENADINE HYDROCHLORIDE
     Indication: PREMEDICATION
     Route: 065
  2. BIO-MANGUINHOS INFLIXIMABE [Suspect]
     Active Substance: INFLIXIMAB
     Indication: CROHN^S DISEASE
     Dosage: 2 VIALS, WEEK 0, 2 AND 6
     Route: 042
     Dates: start: 20190916
  3. MESALAZINE [Concomitant]
     Active Substance: MESALAMINE
     Route: 065
  4. PREDNISONE. [Concomitant]
     Active Substance: PREDNISONE
     Indication: PREMEDICATION
     Route: 065
  5. INFLIXIMAB, RECOMBINANT [Suspect]
     Active Substance: INFLIXIMAB
     Indication: CROHN^S DISEASE
     Route: 042
  6. REMICADE [Suspect]
     Active Substance: INFLIXIMAB
     Indication: CROHN^S DISEASE
     Dosage: SEP-2019 (INFORMED BY REPORTER), ONCE A MONTH INDUCATION PHASE
     Route: 042
     Dates: start: 20190901, end: 201910
  7. DIPHENHYDRAMINE. [Concomitant]
     Active Substance: DIPHENHYDRAMINE
     Indication: PREMEDICATION
     Route: 065
  8. AZATHIOPRINE. [Concomitant]
     Active Substance: AZATHIOPRINE
  9. DEXAMETHASONE. [Concomitant]
     Active Substance: DEXAMETHASONE
     Indication: PREMEDICATION
     Route: 065
  10. RANITIDINE. [Concomitant]
     Active Substance: RANITIDINE
     Indication: PREMEDICATION
     Route: 065

REACTIONS (4)
  - Infusion related reaction [Recovered/Resolved]
  - Nasopharyngitis [Not Recovered/Not Resolved]
  - Cough [Not Recovered/Not Resolved]
  - Anaphylactic reaction [Recovered/Resolved]

NARRATIVE: CASE EVENT DATE: 20190930
